FAERS Safety Report 4411299-X (Version None)
Quarter: 2004Q3

REPORT INFORMATION
  Report Type: 
  Country: None (occurrence: None)
  Receive Date: 20040727
  Receipt Date: 20040713
  Transmission Date: 20050211
  Serious: Yes (Death)
  Sender: FDA-Public Use
  Company Number: RENA-11109

PATIENT
  Age: 57 Year
  Sex: Male

DRUGS (7)
  1. RENAGEL [Suspect]
     Indication: HYPERPHOSPHATAEMIA
     Dosage: 6 TAB DAILY PO
     Route: 048
     Dates: start: 20031201, end: 20040501
  2. FOLIC ACID [Concomitant]
  3. NIFEDIPINE [Concomitant]
  4. CAPTOPRIL [Concomitant]
  5. CALCIUM CARBONATE [Concomitant]
  6. VITAMIN B COMPLEX CAP [Concomitant]
  7. EPOGEN [Concomitant]

REACTIONS (4)
  - CHOLECYSTITIS [None]
  - HEPATITIS [None]
  - HEPATOMEGALY [None]
  - SEPSIS [None]
